FAERS Safety Report 9928744 (Version 2)
Quarter: 2014Q1

REPORT INFORMATION
  Report Type: Spontaneous
  Country: HU (occurrence: HU)
  Receive Date: 20140227
  Receipt Date: 20140306
  Transmission Date: 20141002
  Serious: Yes (Hospitalization, Other)
  Sender: FDA-Public Use
  Company Number: HU-AMGEN-HUNSP2014012829

PATIENT
  Age: 82 Year
  Sex: Female

DRUGS (5)
  1. PROLIA [Suspect]
     Indication: OSTEOPOROSIS
     Dosage: 60 MG/ML, Q6MO
     Route: 058
     Dates: start: 2013
  2. BETALOC                            /00376902/ [Concomitant]
  3. LUCETAM [Concomitant]
  4. VITAMIN D3 [Concomitant]
     Dosage: 3000 IU, UNK
  5. CITROKALCIUM [Concomitant]

REACTIONS (2)
  - Femur fracture [Recovered/Resolved]
  - Bone pain [Unknown]
